FAERS Safety Report 10163671 (Version 1)
Quarter: 2014Q2

REPORT INFORMATION
  Report Type: Spontaneous
  Country: US (occurrence: US)
  Receive Date: 20140509
  Receipt Date: 20140509
  Transmission Date: 20141212
  Serious: No
  Sender: FDA-Public Use
  Company Number: US-BAXTER-2014BAX020926

PATIENT
  Sex: Female

DRUGS (4)
  1. DIANEAL LOW CALCIUM [Suspect]
     Indication: RENAL FAILURE CHRONIC
     Route: 033
     Dates: start: 2014
  2. DIANEAL LOW CALCIUM [Suspect]
     Route: 033
     Dates: start: 2014
  3. DIANEAL LOW CALCIUM [Suspect]
     Indication: RENAL FAILURE CHRONIC
     Route: 033
     Dates: start: 2014
  4. DIANEAL LOW CALCIUM [Suspect]
     Route: 033
     Dates: start: 2014

REACTIONS (4)
  - Joint swelling [Recovered/Resolved]
  - Unevaluable event [Unknown]
  - Abdominal distension [Unknown]
  - Constipation [Recovered/Resolved]
